FAERS Safety Report 9482234 (Version 1)
Quarter: 2013Q3

REPORT INFORMATION
  Report Type: Spontaneous
  Country: GB (occurrence: GB)
  Receive Date: 20130828
  Receipt Date: 20130828
  Transmission Date: 20140515
  Serious: Yes (Disabling)
  Sender: FDA-Public Use
  Company Number: GB-JNJFOC-20130811993

PATIENT
  Age: 61 Year
  Sex: Female
  Weight: 54 kg

DRUGS (7)
  1. TOPIRAMATE [Suspect]
     Indication: PRODUCT USED FOR UNKNOWN INDICATION
     Route: 048
     Dates: start: 20130729
  2. CLOBETASONE BUTYRATE [Concomitant]
     Route: 065
     Dates: start: 20130729
  3. METOCLOPRAMIDE [Concomitant]
     Route: 065
     Dates: start: 20130415, end: 20130513
  4. NAPROXEN [Concomitant]
     Route: 065
     Dates: start: 20130513, end: 20130603
  5. PIZOTIFEN [Concomitant]
     Route: 065
     Dates: start: 20130422, end: 20130520
  6. PROPRANOLOL [Concomitant]
     Route: 065
     Dates: start: 20130415, end: 20130513
  7. RANITIDINE [Concomitant]
     Route: 065
     Dates: start: 20130513, end: 20130603

REACTIONS (2)
  - Mood altered [Recovered/Resolved]
  - Anger [Unknown]
